FAERS Safety Report 14065233 (Version 1)
Quarter: 2017Q4

REPORT INFORMATION
  Report Type: Spontaneous
  Country: RS (occurrence: RS)
  Receive Date: 20171009
  Receipt Date: 20171009
  Transmission Date: 20180321
  Serious: Yes (Other)
  Sender: FDA-Public Use
  Company Number: RS-IMPAX LABORATORIES, INC-2017-IPXL-02819

PATIENT
  Age: 18 Month
  Sex: Female

DRUGS (2)
  1. POTASSIUM CITRATE ER 15 MEQ, 15 MEQ [Suspect]
     Active Substance: POTASSIUM CITRATE
     Indication: PROPHYLAXIS
     Dosage: UNK
     Route: 065
  2. SULFAMETHOXAZOLE W/TRIMETHOPRIM [Concomitant]
     Active Substance: SULFAMETHOXAZOLE\TRIMETHOPRIM
     Indication: HAEMATURIA
     Dosage: 5 MG, 2 /WEEK
     Route: 065

REACTIONS (4)
  - Diarrhoea [Unknown]
  - Rickets [Unknown]
  - Metabolic acidosis [Unknown]
  - Arthritis [Recovering/Resolving]
